FAERS Safety Report 13428152 (Version 14)
Quarter: 2019Q3

REPORT INFORMATION
  Report Type: Report from Study
  Country: US (occurrence: US)
  Receive Date: 20170411
  Receipt Date: 20190917
  Transmission Date: 20191004
  Serious: Yes (Hospitalization, Other)
  Sender: FDA-Public Use
  Company Number: US-ACTELION-A-US2017-152214

PATIENT
  Age: 58 Year
  Sex: Female
  Weight: 77.55 kg

DRUGS (6)
  1. OPSUMIT [Suspect]
     Active Substance: MACITENTAN
     Indication: PULMONARY HYPERTENSION
     Dosage: 10 MG, QD
     Route: 048
  2. VERAPAMIL [Concomitant]
     Active Substance: VERAPAMIL HYDROCHLORIDE
  3. WARFARIN [Concomitant]
     Active Substance: WARFARIN
  4. OPSUMIT [Suspect]
     Active Substance: MACITENTAN
     Dosage: 10 MG, QD
     Route: 048
  5. TYVASO [Concomitant]
     Active Substance: TREPROSTINIL
  6. ADCIRCA [Concomitant]
     Active Substance: TADALAFIL

REACTIONS (29)
  - Cough [Unknown]
  - Dyspnoea [Unknown]
  - Dermatitis [Unknown]
  - Presyncope [Unknown]
  - Pyrexia [Unknown]
  - Infection [Unknown]
  - Pericardial effusion [Unknown]
  - Dry mouth [Unknown]
  - Nasopharyngitis [Unknown]
  - Abdominal discomfort [Unknown]
  - Sinusitis [Unknown]
  - Peripheral venous disease [Unknown]
  - Fungal skin infection [Unknown]
  - Dizziness [Unknown]
  - Flank pain [Unknown]
  - Nausea [Unknown]
  - Biopsy bone marrow [Unknown]
  - Oxygen saturation decreased [Unknown]
  - Weight increased [Unknown]
  - Blood pressure increased [Unknown]
  - Abdominal distension [Unknown]
  - Syncope [Unknown]
  - Loss of consciousness [Unknown]
  - Abdominal pain upper [Unknown]
  - Eye luxation [Unknown]
  - Dyspepsia [Unknown]
  - Oedema [Unknown]
  - Chest discomfort [Unknown]
  - Malaise [Unknown]

NARRATIVE: CASE EVENT DATE: 20170322
